FAERS Safety Report 10176370 (Version 1)
Quarter: 2014Q2

REPORT INFORMATION
  Report Type: Spontaneous
  Country: US (occurrence: None)
  Receive Date: 20140514
  Receipt Date: 20140514
  Transmission Date: 20141212
  Serious: Yes (Other)
  Sender: FDA-Public Use
  Company Number: AUR-APL-2014-05560

PATIENT
  Age: 64 Year
  Sex: Male

DRUGS (3)
  1. OLANZAPINE  (OLANZAPINE) [Suspect]
     Indication: AGITATION
     Dosage: 1 D
  2. QUETIAPINE (QUETIAPINE) [Suspect]
     Indication: AGITATION
     Dosage: 1 D
  3. HALOPERIDOL (HALOPERIDOL) (HALOPERIDOL) [Suspect]
     Indication: CONFUSIONAL STATE
     Dosage: UP TO 20 MG
     Route: 042

REACTIONS (4)
  - Akathisia [None]
  - No therapeutic response [None]
  - Agitation [None]
  - Insomnia [None]
